FAERS Safety Report 15241107 (Version 1)
Quarter: 2018Q3

REPORT INFORMATION
  Report Type: Spontaneous
  Country: US (occurrence: US)
  Receive Date: 20180711
  Receipt Date: 20180711
  Transmission Date: 20181010
  Serious: Yes (Other)
  Sender: FDA-Public Use
  Company Number: None

PATIENT
  Age: 96 Year
  Sex: Male

DRUGS (14)
  1. VITAMIN D3 [Concomitant]
     Active Substance: CHOLECALCIFEROL
  2. METOPROLOL. [Concomitant]
     Active Substance: METOPROLOL
  3. SIMVASTATIN. [Concomitant]
     Active Substance: SIMVASTATIN
  4. FAMOTIDINE. [Concomitant]
     Active Substance: FAMOTIDINE
  5. LUPRON DEPOT [Concomitant]
     Active Substance: LEUPROLIDE ACETATE
  6. TIZANIDINE. [Concomitant]
     Active Substance: TIZANIDINE
  7. ERLEADA [Suspect]
     Active Substance: APALUTAMIDE
     Indication: PROSTATE CANCER
     Route: 048
     Dates: start: 20180421
  8. CASODEX [Concomitant]
     Active Substance: BICALUTAMIDE
  9. DICYCLOMINE [Concomitant]
     Active Substance: DICYCLOMINE HYDROCHLORIDE
  10. LEVOTHYROXINE. [Concomitant]
     Active Substance: LEVOTHYROXINE
  11. POTASSIUM [Concomitant]
     Active Substance: POTASSIUM
  12. TAMSULOSIN [Concomitant]
     Active Substance: TAMSULOSIN
  13. AMBIEN [Concomitant]
     Active Substance: ZOLPIDEM TARTRATE
  14. PEG 3350 [Concomitant]
     Active Substance: POLYETHYLENE GLYCOL 3350

REACTIONS (3)
  - Fatigue [None]
  - Decreased appetite [None]
  - Hypersomnia [None]
